FAERS Safety Report 8880279 (Version 1)
Quarter: 2012Q4

REPORT INFORMATION
  Report Type: 
  Country: NL (occurrence: NL)
  Receive Date: 20121101
  Receipt Date: 20121101
  Transmission Date: 20130627
  Serious: Yes (Hospitalization)
  Sender: FDA-Public Use
  Company Number: NL-PFIZER INC-2012266979

PATIENT
  Sex: Male
  Weight: 130 kg

DRUGS (7)
  1. SOMATROPIN [Suspect]
     Indication: GROWTH HORMONE DEFICIENCY
     Dosage: 0.2 mg, 7/wk
     Route: 058
     Dates: start: 20060130
  2. CORTISONE ACETATE [Concomitant]
     Indication: ACTH DECREASED
     Dosage: UNK
     Dates: start: 20020101
  3. TESTOSTERONE [Concomitant]
     Indication: LH DECREASED
     Dosage: UNK
     Dates: start: 20050101
  4. TESTOSTERONE [Concomitant]
     Indication: FSH DECREASED
  5. VOLCOLON [Concomitant]
     Indication: DIARRHEA
     Dosage: UNK
     Dates: start: 20061201
  6. LEVOTHYROXINE [Concomitant]
     Indication: TSH DECREASED
     Dosage: UNK
     Dates: start: 20050101
  7. COAPROVEL [Concomitant]
     Indication: ESSENTIAL HYPERTENSION
     Dosage: UNK
     Dates: start: 20060130

REACTIONS (1)
  - Arthropathy [Unknown]
